FAERS Safety Report 8785204 (Version 2)
Quarter: 2012Q4

REPORT INFORMATION
  Report Type: 
  Country: BR (occurrence: BR)
  Receive Date: 20120914
  Receipt Date: 20120918
  Transmission Date: 20130627
  Serious: Yes (Hospitalization)
  Sender: FDA-Public Use
  Company Number: BR-SANOFI-AVENTIS-2012SA064208

PATIENT
  Age: 5 Year
  Sex: Male

DRUGS (1)
  1. LANTUS [Suspect]
     Indication: DIABETES
     Route: 065
     Dates: start: 2008

REACTIONS (4)
  - Surgery [Unknown]
  - Hyperglycaemia [Unknown]
  - Drug ineffective [Unknown]
  - Off label use [Unknown]
